FAERS Safety Report 7593638-4 (Version None)
Quarter: 2011Q3

REPORT INFORMATION
  Report Type: 
  Country: None (occurrence: None)
  Receive Date: 20110706
  Receipt Date: 20110701
  Transmission Date: 20111222
  Serious: Yes (Death)
  Sender: FDA-Public Use
  Company Number: PHHY2011US59268

PATIENT
  Age: 11 Year

DRUGS (4)
  1. CYCLOPHOSPHAMIDE [Concomitant]
  2. BUSULFAN [Concomitant]
  3. CYCLOSPORINE [Suspect]
     Indication: PROPHYLAXIS AGAINST GRAFT VERSUS HOST DISEASE
  4. ANTI-THYMOCYTE GLOBULIN NOS [Concomitant]

REACTIONS (1)
  - ACUTE MYELOID LEUKAEMIA [None]
